FAERS Safety Report 5914722-4 (Version None)
Quarter: 2008Q4

REPORT INFORMATION
  Report Type: 
  Country: None (occurrence: None)
  Receive Date: 20081010
  Receipt Date: 20080523
  Transmission Date: 20090506
  Serious: No
  Sender: FDA-Public Use
  Company Number: US-BAYER-200824253NA

PATIENT
  Age: 29 Year
  Sex: Female

DRUGS (3)
  1. MAGNEVIST [Suspect]
     Indication: NUCLEAR MAGNETIC RESONANCE IMAGING ABDOMINAL
     Dosage: TOTAL DAILY DOSE: 9 ML
     Route: 042
     Dates: start: 20080520, end: 20080520
  2. YAZ [Suspect]
  3. SPIRONOLACTONE [Concomitant]

REACTIONS (3)
  - ALOPECIA [None]
  - RHINORRHOEA [None]
  - SNEEZING [None]
